FAERS Safety Report 8171589-4 (Version None)
Quarter: 2012Q1

REPORT INFORMATION
  Report Type: 
  Country: None (occurrence: None)
  Receive Date: 20120228
  Receipt Date: 20120217
  Transmission Date: 20120608
  Serious: Yes (Hospitalization)
  Sender: FDA-Public Use
  Company Number: US-BAYER-2011-043941

PATIENT
  Age: 30 Year
  Sex: Female
  Weight: 59 kg

DRUGS (6)
  1. DEXAMETHASONE [Concomitant]
     Dosage: UNK
     Dates: start: 20080121
  2. NSAID'S [Concomitant]
  3. INTERFERON [Concomitant]
     Dosage: UNK
     Dates: start: 20080121
  4. TEMAZEPAM [Concomitant]
     Dosage: 15 MG, UNK
  5. YASMIN [Suspect]
     Indication: ORAL CONTRACEPTION
     Dosage: UNK
     Route: 048
     Dates: start: 20060101, end: 20080101
  6. BUPROPION HCL [Concomitant]
     Dosage: 300 MG, QD

REACTIONS (11)
  - PSYCHOLOGICAL TRAUMA [None]
  - DYSPNOEA [None]
  - EMOTIONAL DISTRESS [None]
  - DEEP VEIN THROMBOSIS [None]
  - FEAR [None]
  - PAIN [None]
  - PULMONARY EMBOLISM [None]
  - ANXIETY [None]
  - OEDEMA PERIPHERAL [None]
  - INJURY [None]
  - ANHEDONIA [None]
